FAERS Safety Report 20467455 (Version 3)
Quarter: 2022Q2

REPORT INFORMATION
  Report Type: Report from Study
  Country: FR (occurrence: FR)
  Receive Date: 20220214
  Receipt Date: 20220422
  Transmission Date: 20220721
  Serious: Yes (Hospitalization)
  Sender: FDA-Public Use
  Company Number: FR-TAKEDA-2022TUS008128

PATIENT
  Age: 10 Year
  Sex: Male

DRUGS (8)
  1. TEDUGLUTIDE [Suspect]
     Active Substance: TEDUGLUTIDE
     Indication: Short-bowel syndrome
     Dosage: 1.2 MILLIGRAM (0.05 MG/KG), QD
     Route: 065
     Dates: start: 20181123, end: 20200701
  2. TEDUGLUTIDE [Suspect]
     Active Substance: TEDUGLUTIDE
     Indication: Short-bowel syndrome
     Dosage: 1.2 MILLIGRAM (0.05 MG/KG), QD
     Route: 065
     Dates: start: 20181123, end: 20200701
  3. TEDUGLUTIDE [Suspect]
     Active Substance: TEDUGLUTIDE
     Indication: Short-bowel syndrome
     Dosage: 1.2 MILLIGRAM (0.05 MG/KG), QD
     Route: 065
     Dates: start: 20181123, end: 20200701
  4. TEDUGLUTIDE [Suspect]
     Active Substance: TEDUGLUTIDE
     Indication: Short-bowel syndrome
     Dosage: 1.2 MILLIGRAM (0.05 MG/KG), QD
     Route: 065
     Dates: start: 20181123, end: 20200701
  5. Fucidine [Concomitant]
     Indication: Catheter site erythema
     Dosage: 2.00 PERCENT, QD
     Route: 003
     Dates: start: 20190911
  6. BETAMETHASONE [Concomitant]
     Active Substance: BETAMETHASONE
     Indication: Laryngitis
     Dosage: UNK, QD
     Route: 048
     Dates: start: 20190513, end: 20190515
  7. ACETAMINOPHEN [Concomitant]
     Active Substance: ACETAMINOPHEN
     Indication: Laryngitis
     Dosage: UNK
     Route: 048
     Dates: start: 20190513, end: 20190515
  8. URSODIOL [Concomitant]
     Active Substance: URSODIOL
     Indication: Hepatic fibrosis
     Dosage: 200 MILLIGRAM, BID
     Route: 048

REACTIONS (1)
  - Device breakage [Recovered/Resolved]

NARRATIVE: CASE EVENT DATE: 20211017
